FAERS Safety Report 13467184 (Version 2)
Quarter: 2017Q2

REPORT INFORMATION
  Report Type: Spontaneous
  Country: US (occurrence: US)
  Receive Date: 20170421
  Receipt Date: 20170512
  Transmission Date: 20170830
  Serious: Yes (Other)
  Sender: FDA-Public Use
  Company Number: US-PFIZER INC-2017174381

PATIENT
  Age: 42 Year
  Sex: Female
  Weight: 61 kg

DRUGS (7)
  1. GENOTROPIN MQ [Suspect]
     Active Substance: SOMATROPIN
     Indication: HYPOPITUITARISM
     Dosage: 0.6 MG, DAILY (7X/WEEK)
     Route: 058
     Dates: start: 2015
  2. GENOTROPIN MQ [Suspect]
     Active Substance: SOMATROPIN
     Indication: GROWTH HORMONE DEFICIENCY
  3. ESTROGEN [Concomitant]
     Active Substance: ESTROGENS
  4. PROGESTERONE. [Concomitant]
     Active Substance: PROGESTERONE
  5. VITAMIN D [Concomitant]
     Active Substance: CHOLECALCIFEROL
     Dosage: 2000 IU, DAILY
  6. NATURE-THROID [Concomitant]
     Active Substance: THYROID, PORCINE
     Dosage: UNK UNK, DAILY (1 GRAIN DAILY)
  7. DIGESTIVE ENZYMES [Concomitant]
     Active Substance: UNSPECIFIED INGREDIENT
     Dosage: UNK

REACTIONS (5)
  - Fatigue [Not Recovered/Not Resolved]
  - Drug ineffective [Unknown]
  - Renal failure [Unknown]
  - Loss of consciousness [Unknown]
  - Malaise [Not Recovered/Not Resolved]
